FAERS Safety Report 7782314-0 (Version None)
Quarter: 2011Q3

REPORT INFORMATION
  Report Type: 
  Country: None (occurrence: None)
  Receive Date: 20110927
  Receipt Date: 20110914
  Transmission Date: 20111222
  Serious: Yes (Death, Life-Threatening, Other)
  Sender: FDA-Public Use
  Company Number: AU-ELI_LILLY_AND_COMPANY-AU201004005735

PATIENT
  Age: 27 Year
  Sex: Male

DRUGS (1)
  1. ZYPREXA [Suspect]
     Indication: AGITATION
     Dosage: 10 MG, UNK
     Route: 030
     Dates: start: 20100401, end: 20100401

REACTIONS (4)
  - RESPIRATORY ARREST [None]
  - LOSS OF CONSCIOUSNESS [None]
  - INAPPROPRIATE SCHEDULE OF DRUG ADMINISTRATION [None]
  - CARDIAC ARREST [None]
